FAERS Safety Report 21712395 (Version 2)
Quarter: 2022Q4

REPORT INFORMATION
  Report Type: Spontaneous
  Country: BE (occurrence: BE)
  Receive Date: 20221212
  Receipt Date: 20221226
  Transmission Date: 20230113
  Serious: Yes (Hospitalization)
  Sender: FDA-Public Use
  Company Number: BE-Accord-284988

PATIENT
  Age: 54 Year
  Sex: Female

DRUGS (17)
  1. CARBOPLATIN [Suspect]
     Active Substance: CARBOPLATIN
     Indication: Cervix carcinoma
     Dosage: 5 AUC, 1Q3W
     Route: 042
     Dates: start: 20221014
  2. BEVACIZUMAB [Suspect]
     Active Substance: BEVACIZUMAB
     Indication: Cervix carcinoma
     Dosage: 1Q3W
     Route: 042
     Dates: start: 20221014
  3. PEMBROLIZUMAB [Suspect]
     Active Substance: PEMBROLIZUMAB
     Indication: Cervix carcinoma
     Dosage: UNK UNK, 1Q3W
     Route: 042
     Dates: start: 20221014
  4. TISOTUMAB VEDOTIN [Suspect]
     Active Substance: TISOTUMAB VEDOTIN
     Indication: Cervix carcinoma
     Dosage: 1Q3W?MONOTHERAPY ON DAY 1, 8, AND 15 OF EVERY 28-DAY CYCLE (3Q4W)
     Route: 042
     Dates: start: 20221014
  5. PALONOSETRON [Concomitant]
     Active Substance: PALONOSETRON
     Dates: start: 20221014
  6. SOLU-MEDROL [Concomitant]
     Active Substance: METHYLPREDNISOLONE SODIUM SUCCINATE
     Dates: start: 20221014
  7. MEDROL [Concomitant]
     Active Substance: METHYLPREDNISOLONE
     Dates: start: 20221015
  8. HYALURONATE SODIUM\TREHALOSE [Concomitant]
     Active Substance: HYALURONATE SODIUM\TREHALOSE
     Dates: start: 20221014
  9. PERINDOPRIL [Concomitant]
     Active Substance: PERINDOPRIL
     Dates: start: 2020
  10. FOSFOMYCIN TROMETHAMINE [Concomitant]
     Active Substance: FOSFOMYCIN TROMETHAMINE
     Dates: start: 20221021, end: 20221021
  11. SODIUM CITRATE\SODIUM LAURYL SULFOACETATE\SORBITOL [Concomitant]
     Active Substance: SODIUM CITRATE\SODIUM LAURYL SULFOACETATE\SORBITOL
     Dates: start: 20221028, end: 20221028
  12. MOVICOL [Concomitant]
     Active Substance: POLYETHYLENE GLYCOL 3350\POTASSIUM CHLORIDE\SODIUM BICARBONATE\SODIUM CHLORIDE
     Dates: start: 20221028
  13. DIFLUCAN [Concomitant]
     Active Substance: FLUCONAZOLE
     Dates: start: 20221024, end: 20221024
  14. ZYRTEC [Concomitant]
     Active Substance: CETIRIZINE HYDROCHLORIDE
     Dates: start: 20221024
  15. DEXERYL [Concomitant]
     Dates: start: 20221024
  16. HUMAN RED BLOOD CELL [Concomitant]
     Active Substance: HUMAN RED BLOOD CELL
     Dates: start: 20221026, end: 20221026
  17. DAFALGAN [Concomitant]
     Active Substance: ACETAMINOPHEN
     Dates: start: 2014

REACTIONS (1)
  - Viral infection [Recovered/Resolved]

NARRATIVE: CASE EVENT DATE: 20221021
